FAERS Safety Report 5570717-4 (Version None)
Quarter: 2007Q4

REPORT INFORMATION
  Report Type: 
  Country: None (occurrence: None)
  Receive Date: 20071221
  Receipt Date: 20071213
  Transmission Date: 20080405
  Serious: Yes (Other)
  Sender: FDA-Public Use
  Company Number: BR-ASTRAZENECA-2007UW28519

PATIENT
  Age: 71 Year
  Sex: Male
  Weight: 79 kg

DRUGS (11)
  1. PROPOFOL [Suspect]
     Indication: SEDATION
     Route: 042
  2. CISATRACURIUM [Suspect]
     Indication: SEDATION
  3. REMIFENTANIL [Suspect]
     Indication: SEDATION
  4. REMIFENTANIL [Suspect]
     Dosage: 0.1 TO 0.3 UG/KG/MIN
  5. REMIFENTANIL [Suspect]
  6. SEVOFLURANE [Suspect]
     Indication: SEDATION
     Dosage: 2% TO 3% WITH FRACTION OF INSPIRED OXYGEN = 1.0
  7. METFORMIN HCL [Concomitant]
  8. LOSARTAN POTASSIUM [Concomitant]
  9. DILTIAZEM [Concomitant]
  10. NITROGLYCERIN [Concomitant]
  11. ASPIRIN [Concomitant]

REACTIONS (6)
  - ATRIOVENTRICULAR BLOCK COMPLETE [None]
  - BRADYCARDIA [None]
  - CHEST PAIN [None]
  - ELECTROCARDIOGRAM T WAVE INVERSION [None]
  - HYPERTENSION [None]
  - HYPOTENSION [None]
